FAERS Safety Report 21662891 (Version 2)
Quarter: 2023Q1

REPORT INFORMATION
  Report Type: Spontaneous
  Country: AR (occurrence: AR)
  Receive Date: 20221130
  Receipt Date: 20230103
  Transmission Date: 20230418
  Serious: Yes (Other)
  Sender: FDA-Public Use
  Company Number: AR-PFIZER INC-PV202200112606

PATIENT
  Age: 58 Year
  Sex: Male

DRUGS (3)
  1. LORLATINIB [Suspect]
     Active Substance: LORLATINIB
     Indication: Lung cancer metastatic
     Dosage: 100 MG, 1X/DAY
     Dates: start: 20220930
  2. ROSUCOL [Concomitant]
     Dosage: UNK
     Dates: start: 202211
  3. LEVOTHYROXINE [Concomitant]
     Active Substance: LEVOTHYROXINE
     Dosage: UNK

REACTIONS (11)
  - Hallucination, auditory [Not Recovered/Not Resolved]
  - Bone pain [Unknown]
  - Sleep disorder [Recovered/Resolved]
  - Fluid retention [Not Recovered/Not Resolved]
  - Peripheral swelling [Not Recovered/Not Resolved]
  - Pain in extremity [Unknown]
  - Hypoaesthesia [Unknown]
  - Joint swelling [Unknown]
  - Blood cholesterol increased [Unknown]
  - Pain [Unknown]
  - Thyroid disorder [Unknown]

NARRATIVE: CASE EVENT DATE: 20221001
